FAERS Safety Report 11595097 (Version 1)
Quarter: 2015Q4

REPORT INFORMATION
  Report Type: Report from Study
  Country: US (occurrence: US)
  Receive Date: 20151006
  Receipt Date: 20151006
  Transmission Date: 20160304
  Serious: No
  Sender: FDA-Public Use
  Company Number: US-AMGEN-USASL2015100493

PATIENT
  Age: 16 Year
  Sex: Female

DRUGS (1)
  1. ENBREL [Suspect]
     Active Substance: ETANERCEPT
     Indication: JUVENILE IDIOPATHIC ARTHRITIS
     Dosage: 25 MG TWO VIALS ONCE WEEKLY, 50 MG, QWK
     Route: 065
     Dates: start: 20150918

REACTIONS (5)
  - Abdominal discomfort [Unknown]
  - Headache [Recovered/Resolved]
  - Injection site pain [Unknown]
  - Diarrhoea [Unknown]
  - Musculoskeletal stiffness [Unknown]

NARRATIVE: CASE EVENT DATE: 20150918
